FAERS Safety Report 25152620 (Version 1)
Quarter: 2025Q2

REPORT INFORMATION
  Report Type: Spontaneous
  Country: CN (occurrence: CN)
  Receive Date: 20250402
  Receipt Date: 20250402
  Transmission Date: 20250716
  Serious: Yes (Life-Threatening, Hospitalization)
  Sender: JIANGSU HENGRUI
  Company Number: CN-JIANGSU HENGRUI PHARMACEUTICALS CO., LTD.-H2025208113

PATIENT
  Age: 61 Year
  Weight: 55 kg

DRUGS (5)
  1. IRINOTECAN HYDROCHLORIDE [Suspect]
     Active Substance: IRINOTECAN HYDROCHLORIDE
     Indication: Adenocarcinoma of colon
  2. FLUOROURACIL [Suspect]
     Active Substance: FLUOROURACIL
     Indication: Adenocarcinoma of colon
  3. FLUOROURACIL [Suspect]
     Active Substance: FLUOROURACIL
  4. CETUXIMAB [Suspect]
     Active Substance: CETUXIMAB
     Indication: Adenocarcinoma of colon
  5. LEUCOVORIN CALCIUM [Concomitant]
     Active Substance: LEUCOVORIN CALCIUM
     Indication: Adenocarcinoma of colon

REACTIONS (3)
  - Diarrhoea [Recovered/Resolved]
  - Lower gastrointestinal haemorrhage [Recovered/Resolved]
  - Abdominal pain [Recovered/Resolved]
